FAERS Safety Report 7422115-6 (Version None)
Quarter: 2011Q2

REPORT INFORMATION
  Report Type: 
  Country: None (occurrence: None)
  Receive Date: 20110418
  Receipt Date: 20110411
  Transmission Date: 20111010
  Serious: Yes (Hospitalization)
  Sender: FDA-Public Use
  Company Number: US-B.I. PHARMACEUTICALS,INC./RIDGEFIELD-2010-BP-14566BP

PATIENT
  Age: 83 Year
  Sex: Female
  Weight: 66.67 kg

DRUGS (5)
  1. PRADAXA [Suspect]
     Indication: ATRIAL FIBRILLATION
     Dosage: 300 MG
     Route: 048
     Dates: start: 20101206, end: 20101221
  2. VYTORIN [Concomitant]
     Indication: BLOOD PRESSURE INCREASED
     Dosage: 10 MG
  3. PRADAXA [Suspect]
     Indication: ANTICOAGULANT THERAPY
  4. BENICAR [Concomitant]
  5. ACTONEL [Concomitant]

REACTIONS (6)
  - FALL [None]
  - WEIGHT DECREASED [None]
  - VOMITING [None]
  - HEADACHE [None]
  - NECK INJURY [None]
  - NAUSEA [None]
